FAERS Safety Report 24556285 (Version 1)
Quarter: 2024Q4

REPORT INFORMATION
  Report Type: Spontaneous
  Country: US (occurrence: None)
  Receive Date: 20241026
  Receipt Date: 20241026
  Transmission Date: 20250115
  Serious: Yes (Disabling)
  Sender: Public
  Company Number: None

PATIENT
  Age: 35 Year
  Sex: Female
  Weight: 72.9 kg

DRUGS (4)
  1. PHEXXI VAGINAL GEL [Suspect]
     Active Substance: CITRIC ACID MONOHYDRATE\LACTIC ACID, L-\POTASSIUM BITARTRATE
     Indication: Contraception
     Dosage: OTHER QUANTITY : 1 SUPPOSITORY(IES)?OTHER FREQUENCY : ONCE?
     Route: 067
     Dates: start: 20240925, end: 20240925
  2. PROPRANOLOL [Concomitant]
  3. SERTRALINE [Concomitant]
  4. VITAMINS [Concomitant]
     Active Substance: VITAMINS

REACTIONS (2)
  - Burning sensation [None]
  - Desquamative inflammatory vaginitis [None]

NARRATIVE: CASE EVENT DATE: 20240925
